FAERS Safety Report 6916232-4 (Version None)
Quarter: 2010Q3

REPORT INFORMATION
  Report Type: 
  Country: None (occurrence: None)
  Receive Date: 20100810
  Receipt Date: 20100730
  Transmission Date: 20110219
  Serious: No
  Sender: FDA-Public Use
  Company Number: 2009BI004241

PATIENT
  Age: 57 Year
  Sex: Male

DRUGS (2)
  1. TYSABRI [Suspect]
     Indication: MULTIPLE SCLEROSIS
     Route: 042
     Dates: start: 20080808
  2. PRESCRIPTION MEDICATION (NOS) [Concomitant]
     Indication: MUSCLE SPASTICITY

REACTIONS (4)
  - DEPRESSION [None]
  - DIARRHOEA [None]
  - DRUG EFFECT DECREASED [None]
  - PAIN IN EXTREMITY [None]
